FAERS Safety Report 16908562 (Version 2)
Quarter: 2019Q4

REPORT INFORMATION
  Report Type: Spontaneous
  Country: US (occurrence: US)
  Receive Date: 20191011
  Receipt Date: 20191104
  Transmission Date: 20200122
  Serious: Yes (Other)
  Sender: FDA-Public Use
  Company Number: US-GLAXOSMITHKLINE-US2019180945

PATIENT
  Age: 75 Year
  Sex: Female

DRUGS (1)
  1. CITRUCEL [Suspect]
     Active Substance: METHYLCELLULOSE (4000 MPA.S)
     Indication: IRRITABLE BOWEL SYNDROME
     Dosage: UNK
     Dates: start: 201909

REACTIONS (8)
  - Choking [Unknown]
  - Sneezing [Unknown]
  - Product storage error [Unknown]
  - Product use in unapproved indication [Unknown]
  - Nonspecific reaction [Unknown]
  - Product complaint [Unknown]
  - Drug effective for unapproved indication [Unknown]
  - Cough [Unknown]
